FAERS Safety Report 14990549 (Version 1)
Quarter: 2018Q2

REPORT INFORMATION
  Report Type: Spontaneous
  Country: US (occurrence: US)
  Receive Date: 20180608
  Receipt Date: 20180608
  Transmission Date: 20180711
  Serious: No
  Sender: FDA-Public Use
  Company Number: US-ROCHE-2040428

PATIENT
  Sex: Female

DRUGS (14)
  1. NOVOLIN R [Concomitant]
     Active Substance: INSULIN HUMAN
  2. ACTEMRA [Suspect]
     Active Substance: TOCILIZUMAB
     Indication: TEMPORAL ARTERITIS
     Route: 058
     Dates: start: 20171204
  3. CLONIDINE HCL [Concomitant]
     Active Substance: CLONIDINE HYDROCHLORIDE
     Route: 065
  4. LORAZEPAM. [Concomitant]
     Active Substance: LORAZEPAM
     Route: 065
  5. METFORMIN HYDROCHLORIDE. [Concomitant]
     Active Substance: METFORMIN HYDROCHLORIDE
     Route: 065
  6. CLOPIDOGREL [Concomitant]
     Active Substance: CLOPIDOGREL BISULFATE
     Route: 065
  7. PREDNISONE. [Concomitant]
     Active Substance: PREDNISONE
     Route: 065
  8. NOVOLIN 70/30 [Concomitant]
     Active Substance: INSULIN HUMAN
  9. GABAPENTIN. [Concomitant]
     Active Substance: GABAPENTIN
     Route: 065
  10. LASIX [Concomitant]
     Active Substance: FUROSEMIDE
     Route: 065
  11. AMLODIPINE BESILATE [Concomitant]
     Active Substance: AMLODIPINE BESYLATE
     Route: 065
  12. IBUPROFEN. [Concomitant]
     Active Substance: IBUPROFEN
     Route: 065
  13. NORCO [Concomitant]
     Active Substance: ACETAMINOPHEN\HYDROCODONE BITARTRATE
     Route: 065
  14. PRAVASTATIN. [Concomitant]
     Active Substance: PRAVASTATIN
     Route: 065

REACTIONS (4)
  - Vision blurred [Not Recovered/Not Resolved]
  - Nasopharyngitis [Not Recovered/Not Resolved]
  - Eye disorder [Not Recovered/Not Resolved]
  - Cough [Not Recovered/Not Resolved]
